FAERS Safety Report 8449910-9 (Version None)
Quarter: 2012Q2

REPORT INFORMATION
  Report Type: 
  Country: None (occurrence: None)
  Receive Date: 20120620
  Receipt Date: 20120613
  Transmission Date: 20120825
  Serious: Yes (Hospitalization)
  Sender: FDA-Public Use
  Company Number: PHFR2012GB002127

PATIENT
  Sex: Female
  Weight: 58 kg

DRUGS (4)
  1. EXELON [Suspect]
     Dosage: UNK UKN, UNK
  2. EXELON [Suspect]
     Dosage: 9.5 MG, UNK
     Route: 062
     Dates: start: 20110322, end: 20110330
  3. LORAZEPAM [Concomitant]
     Dosage: UNK
  4. BUPRENORPHINE [Concomitant]

REACTIONS (6)
  - AGITATION [None]
  - RESTLESSNESS [None]
  - ABNORMAL BEHAVIOUR [None]
  - SCREAMING [None]
  - SALIVARY HYPERSECRETION [None]
  - AGGRESSION [None]
